FAERS Safety Report 6826532-4 (Version None)
Quarter: 2010Q3

REPORT INFORMATION
  Report Type: 
  Country: None (occurrence: None)
  Receive Date: 20100709
  Receipt Date: 20100628
  Transmission Date: 20110219
  Serious: Yes (Other)
  Sender: FDA-Public Use
  Company Number: PHHY2010FR43839

PATIENT
  Sex: Female

DRUGS (1)
  1. ACLASTA [Suspect]
     Indication: OSTEOPOROSIS
     Dosage: UNK
     Dates: start: 20090701

REACTIONS (6)
  - ARRHYTHMIA [None]
  - BLOOD 25-HYDROXYCHOLECALCIFEROL INCREASED [None]
  - BLOOD CREATININE INCREASED [None]
  - HYPERCALCAEMIA [None]
  - MICROALBUMINURIA [None]
  - PROTEINURIA [None]
